FAERS Safety Report 19877101 (Version 1)
Quarter: 2021Q3

REPORT INFORMATION
  Report Type: Spontaneous
  Country: US (occurrence: US)
  Receive Date: 20210923
  Receipt Date: 20210923
  Transmission Date: 20211014
  Serious: Yes (Hospitalization, Other)
  Sender: FDA-Public Use
  Company Number: US-TEVA-2021-US-1957080

PATIENT
  Age: 29 Year
  Sex: Female
  Weight: 112 kg

DRUGS (12)
  1. SUBUTEX [Suspect]
     Active Substance: BUPRENORPHINE HYDROCHLORIDE
     Indication: PAIN
     Dosage: 16 MILLIGRAM DAILY;
     Route: 048
     Dates: start: 201610
  2. SUBOXONE [Suspect]
     Active Substance: BUPRENORPHINE HYDROCHLORIDE\NALOXONE HYDROCHLORIDE
     Dosage: 4 MILLIGRAM DAILY;
     Route: 065
  3. BUPRENORPHINE ACTAVIS [Suspect]
     Active Substance: BUPRENORPHINE
     Dosage: 4 MILLIGRAM DAILY;
     Route: 065
  4. SUBUTEX [Suspect]
     Active Substance: BUPRENORPHINE HYDROCHLORIDE
     Dosage: 4 MILLIGRAM DAILY;
     Route: 065
  5. GABAPENTIN ACTAVIS [Concomitant]
     Active Substance: GABAPENTIN
     Dosage: 6 DOSAGE FORMS DAILY;
  6. BUPRENORPHINE ACTAVIS [Suspect]
     Active Substance: BUPRENORPHINE
     Indication: PAIN
     Dosage: 16 MILLIGRAM DAILY;
     Route: 048
     Dates: start: 201706, end: 201711
  7. GABAPENTIN ACTAVIS [Concomitant]
     Active Substance: GABAPENTIN
     Dosage: 1 DOSAGE FORMS DAILY;
     Dates: start: 201405
  8. SUBOXONE [Suspect]
     Active Substance: BUPRENORPHINE HYDROCHLORIDE\NALOXONE HYDROCHLORIDE
     Indication: PAIN
     Dosage: 16 MILLIGRAM DAILY;
     Route: 060
     Dates: start: 201107
  9. ACETAMINOPHEN W/OXYCODONE [Suspect]
     Active Substance: ACETAMINOPHEN\OXYCODONE HYDROCHLORIDE
     Indication: PAIN
     Dosage: 5/325MG, ONCE EVERY 6 HOURS
     Route: 048
     Dates: start: 20161119, end: 20170804
  10. BUPRENORPHINE HCL HIKMA [Suspect]
     Active Substance: BUPRENORPHINE HYDROCHLORIDE
     Route: 065
  11. BUPRENORPHINE HCL HIKMA [Suspect]
     Active Substance: BUPRENORPHINE HYDROCHLORIDE
     Indication: PAIN
     Dosage: 16 MILLIGRAM DAILY;
     Route: 048
     Dates: start: 201706, end: 201711
  12. KLONOPIN [Concomitant]
     Active Substance: CLONAZEPAM
     Indication: ANXIETY
     Dosage: FROM 3 MG DOWN TO 1 MG

REACTIONS (16)
  - Kell blood group positive [Not Recovered/Not Resolved]
  - Limb mass [Unknown]
  - Gestational hypertension [Recovered/Resolved]
  - Treatment noncompliance [Unknown]
  - Polyhydramnios [Unknown]
  - Gestational diabetes [Unknown]
  - Vaginal infection [Not Recovered/Not Resolved]
  - Nausea [Not Recovered/Not Resolved]
  - Vulvovaginal candidiasis [Not Recovered/Not Resolved]
  - Maternal exposure during pregnancy [Unknown]
  - Peripheral swelling [Unknown]
  - Pelvic pain [Unknown]
  - Drug abuse [Unknown]
  - Back pain [Unknown]
  - Perineal pain [Unknown]
  - Pre-eclampsia [Recovered/Resolved]

NARRATIVE: CASE EVENT DATE: 2017
